FAERS Safety Report 7243770-X (Version None)
Quarter: 2011Q1

REPORT INFORMATION
  Report Type: 
  Country: None (occurrence: None)
  Receive Date: 20110125
  Receipt Date: 20110120
  Transmission Date: 20110831
  Serious: No
  Sender: FDA-Public Use
  Company Number: US-PFIZER INC-2011001951

PATIENT
  Sex: Male
  Weight: 68 kg

DRUGS (1)
  1. CHANTIX [Suspect]
     Indication: SMOKING CESSATION THERAPY
     Dosage: 1 MG, 2X/DAY
     Route: 048
     Dates: start: 20101227, end: 20110103

REACTIONS (5)
  - RESTLESSNESS [None]
  - RASH ERYTHEMATOUS [None]
  - CONSTIPATION [None]
  - ABNORMAL DREAMS [None]
  - SKIN IRRITATION [None]
